FAERS Safety Report 7727545-0 (Version None)
Quarter: 2011Q3

REPORT INFORMATION
  Report Type: 
  Country: None (occurrence: None)
  Receive Date: 20110902
  Receipt Date: 20110829
  Transmission Date: 20111222
  Serious: Yes (Other)
  Sender: FDA-Public Use
  Company Number: CA-SANOFI-AVENTIS-2011SA055591

PATIENT
  Age: 69 Year
  Sex: Female

DRUGS (5)
  1. GLUCONORM [Concomitant]
     Indication: PRODUCT USED FOR UNKNOWN INDICATION
     Route: 065
  2. SOLOSTAR [Suspect]
     Dates: start: 20110822, end: 20110826
  3. LANTUS [Suspect]
     Indication: PRODUCT USED FOR UNKNOWN INDICATION
     Dosage: DOSE:10 UNIT(S)
     Route: 065
     Dates: start: 20101001
  4. SOLOSTAR [Suspect]
     Indication: PRODUCT USED FOR UNKNOWN INDICATION
     Dates: start: 20101001
  5. LANTUS [Suspect]
     Dosage: DOSE:10 UNIT(S)
     Route: 065
     Dates: start: 20110822, end: 20110826

REACTIONS (1)
  - HYPOGLYCAEMIA [None]
